FAERS Safety Report 10449263 (Version 1)
Quarter: 2014Q3

REPORT INFORMATION
  Report Type: Spontaneous
  Country: US (occurrence: US)
  Receive Date: 20140912
  Receipt Date: 20140912
  Transmission Date: 20150326
  Serious: Yes (Hospitalization)
  Sender: FDA-Public Use
  Company Number: US-SUN PHARMACEUTICAL INDUSTRIES LTD-2014SUN02043

PATIENT
  Age: 63 Year
  Sex: Male

DRUGS (1)
  1. METFORMIN HCL 1000MG  TABLETS [Suspect]
     Active Substance: METFORMIN HYDROCHLORIDE
     Indication: DIABETES MELLITUS
     Dosage: 1000 MG, BID
     Route: 065

REACTIONS (2)
  - Lactic acidosis [Recovering/Resolving]
  - Renal tubular necrosis [Recovering/Resolving]
